FAERS Safety Report 15254711 (Version 2)
Quarter: 2018Q3

REPORT INFORMATION
  Report Type: Report from Study
  Country: US (occurrence: US)
  Receive Date: 20180808
  Receipt Date: 20180817
  Transmission Date: 20181010
  Serious: No
  Sender: FDA-Public Use
  Company Number: US-SA-2018SA215187

PATIENT
  Age: 42 Year
  Sex: Female

DRUGS (2)
  1. DUPILUMAB [Suspect]
     Active Substance: DUPILUMAB
     Indication: DERMATITIS ALLERGIC
     Dosage: 600 MG, 1X
     Route: 058
     Dates: start: 20180728
  2. DUPILUMAB [Suspect]
     Active Substance: DUPILUMAB
     Indication: ECZEMA
     Dosage: 300 MG, QOW
     Route: 058

REACTIONS (10)
  - Nausea [Recovered/Resolved]
  - Injection site bruising [Unknown]
  - Hypoaesthesia oral [Recovered/Resolved]
  - Therapy cessation [Unknown]
  - Hyperhidrosis [Recovered/Resolved]
  - Trismus [Recovered/Resolved]
  - Paraesthesia oral [Recovered/Resolved]
  - Joint lock [Recovered/Resolved]
  - Presyncope [Recovered/Resolved]
  - Unevaluable event [Recovered/Resolved]
